FAERS Safety Report 16969783 (Version 1)
Quarter: 2019Q4

REPORT INFORMATION
  Report Type: Spontaneous
  Country: US (occurrence: US)
  Receive Date: 20190911
  Receipt Date: 20190911
  Transmission Date: 20200122
  Serious: No
  Sender: FDA-Public Use
  Company Number: None

PATIENT
  Age: 74 Year
  Sex: Female

DRUGS (1)
  1. METHOTREXATE 50MG/2ML MDV, 50MG/2ML [Suspect]
     Active Substance: METHOTREXATE
     Indication: CONNECTIVE TISSUE DISORDER
     Route: 058
     Dates: start: 201902

REACTIONS (6)
  - Yellow skin [None]
  - Systemic lupus erythematosus [None]
  - Pain [None]
  - Alopecia [None]
  - Pain in extremity [None]
  - Hypoaesthesia [None]
